FAERS Safety Report 5295476-4 (Version None)
Quarter: 2007Q2

REPORT INFORMATION
  Report Type: 
  Country: None (occurrence: None)
  Receive Date: 20070412
  Receipt Date: 20070404
  Transmission Date: 20071010
  Serious: Yes (Hospitalization)
  Sender: FDA-Public Use
  Company Number: JP-MERCK-0701USA00917

PATIENT
  Age: 9 Year
  Sex: Female
  Weight: 31 kg

DRUGS (11)
  1. SINGULAIR [Suspect]
     Indication: ASTHMA
     Route: 048
     Dates: start: 20060612, end: 20060615
  2. CLARITHROMYCIN [Suspect]
     Indication: BRONCHITIS
     Route: 048
     Dates: start: 20060612, end: 20060615
  3. ASVERIN [Suspect]
     Indication: BRONCHITIS
     Route: 048
     Dates: start: 20060612, end: 20060615
  4. TERBUTALINE SULFATE [Suspect]
     Indication: BRONCHITIS
     Route: 048
     Dates: start: 20060612, end: 20060615
  5. PASETOCIN [Suspect]
     Route: 065
     Dates: start: 20060610, end: 20060612
  6. TRIMEPRAZINE TARTRATE [Concomitant]
     Route: 048
     Dates: start: 20060610, end: 20060612
  7. BROCIN [Suspect]
     Route: 048
     Dates: start: 20060610, end: 20060612
  8. CARBOCYSTEINE [Suspect]
     Route: 048
     Dates: start: 20060610, end: 20060612
  9. CODEINE PHOSPHATE [Suspect]
     Route: 048
     Dates: start: 20060610, end: 20060612
  10. PONTAL [Suspect]
     Route: 048
     Dates: start: 20060610, end: 20060612
  11. BIOFERMIN R [Suspect]
     Route: 065
     Dates: start: 20060610, end: 20060612

REACTIONS (1)
  - STEVENS-JOHNSON SYNDROME [None]
